FAERS Safety Report 6615005-X (Version None)
Quarter: 2010Q1

REPORT INFORMATION
  Report Type: 
  Country: None (occurrence: None)
  Receive Date: 20100226
  Receipt Date: 20100217
  Transmission Date: 20100710
  Serious: Yes (Hospitalization, Other)
  Sender: FDA-Public Use
  Company Number: FR-1180911

PATIENT
  Age: 86 Year
  Sex: Female

DRUGS (8)
  1. TOBRADEX [Suspect]
     Dosage: OPHTHALMIC
     Route: 047
     Dates: start: 20091001, end: 20091020
  2. SYMBICORT [Concomitant]
  3. BIPRETERAX (BI PREDONIUM) [Concomitant]
  4. DIGOXIN [Concomitant]
  5. BISOPROLOL FUMARATE [Concomitant]
  6. COUMADIN [Concomitant]
  7. NEXIUM [Concomitant]
  8. AERIUS (EBASTINE) [Concomitant]

REACTIONS (6)
  - BRAIN NATRIURETIC PEPTIDE INCREASED [None]
  - CARDIAC FAILURE [None]
  - DECREASED APPETITE [None]
  - FLUID RETENTION [None]
  - RENAL FAILURE [None]
  - RESPIRATORY ACIDOSIS [None]
